FAERS Safety Report 5390151-X (Version None)
Quarter: 2007Q3

REPORT INFORMATION
  Report Type: 
  Country: None (occurrence: None)
  Receive Date: 20070718
  Receipt Date: 20070713
  Transmission Date: 20080115
  Serious: Yes (Other)
  Sender: FDA-Public Use
  Company Number: US-BRISTOL-MYERS SQUIBB COMPANY-13846977

PATIENT
  Sex: Female

DRUGS (3)
  1. ORENCIA [Suspect]
     Route: 042
  2. METHOTREXATE SODIUM [Concomitant]
  3. PREDNISONE [Concomitant]

REACTIONS (3)
  - AORTIC VALVE REPLACEMENT [None]
  - ENDOCARDITIS [None]
  - MITRAL VALVE REPLACEMENT [None]
